FAERS Safety Report 5216807-7 (Version None)
Quarter: 2007Q1

REPORT INFORMATION
  Report Type: 
  Country: None (occurrence: None)
  Receive Date: 20070119
  Receipt Date: 20070109
  Transmission Date: 20070707
  Serious: Yes (Hospitalization)
  Sender: FDA-Public Use
  Company Number: 163-21880-06090928

PATIENT
  Age: 68 Year
  Sex: Male

DRUGS (8)
  1. REVLIMID [Suspect]
     Indication: AMYLOIDOSIS
     Dosage: 25 MG, 1 IN 2 D, ORAL; 10 MG, 1 IN 1 D, ORAL
     Route: 048
     Dates: start: 20060131, end: 20060801
  2. REVLIMID [Suspect]
     Indication: AMYLOIDOSIS
     Dosage: 25 MG, 1 IN 2 D, ORAL; 10 MG, 1 IN 1 D, ORAL
     Route: 048
     Dates: start: 20060825
  3. DECADRON [Suspect]
     Indication: AMYLOIDOSIS
     Dosage: 4 MG, WEEKLY; 2 MG, DAILY
  4. NEXIUM [Concomitant]
  5. LEVAQUIN [Concomitant]
  6. POTASSIUM (POTASSIUM) [Concomitant]
  7. AMBIEN [Concomitant]
  8. STOOL SOFTENER (DOCUSATE SODIUM) [Concomitant]

REACTIONS (8)
  - ANAEMIA [None]
  - ATRIAL TACHYCARDIA [None]
  - BLISTER [None]
  - BRONCHITIS [None]
  - CARDIOMYOPATHY [None]
  - GASTROOESOPHAGEAL REFLUX DISEASE [None]
  - PLEURAL EFFUSION [None]
  - PYREXIA [None]
